FAERS Safety Report 16642772 (Version 1)
Quarter: 2019Q3

REPORT INFORMATION
  Report Type: Report from Study
  Country: RU (occurrence: RU)
  Receive Date: 20190729
  Receipt Date: 20190729
  Transmission Date: 20191004
  Serious: Yes (Other)
  Sender: FDA-Public Use
  Company Number: RU-ASTRAZENECA-2019SF06437

PATIENT
  Age: 69 Year
  Sex: Female
  Weight: 83 kg

DRUGS (5)
  1. NEBILET [Concomitant]
     Active Substance: NEBIVOLOL
  2. ATORVASTATIN [Concomitant]
     Active Substance: ATORVASTATIN
  3. FORXIGA [Suspect]
     Active Substance: DAPAGLIFLOZIN
     Indication: TYPE 2 DIABETES MELLITUS
     Route: 048
     Dates: start: 201903, end: 201904
  4. MICARDIS [Concomitant]
     Active Substance: TELMISARTAN
  5. GALVUS [Concomitant]
     Active Substance: VILDAGLIPTIN

REACTIONS (3)
  - Ketoacidosis [Recovered/Resolved]
  - Asthenia [Recovered/Resolved]
  - Renal pain [Recovered/Resolved]

NARRATIVE: CASE EVENT DATE: 2019
